FAERS Safety Report 4736296-6 (Version None)
Quarter: 2005Q3

REPORT INFORMATION
  Report Type: 
  Country: None (occurrence: None)
  Receive Date: 20050802
  Receipt Date: 20050721
  Transmission Date: 20060218
  Serious: No
  Sender: FDA-Public Use
  Company Number: 05H-163-0301186-00

PATIENT
  Age: 62 Year
  Sex: Male
  Weight: 74.8435 kg

DRUGS (4)
  1. NALBUPHINE HCL [Suspect]
     Indication: CATHETERISATION CARDIAC
     Dosage: 5 MG, ONCE; 20 JUL 2005: AFTER CARDIAC CATCH
     Dates: start: 20050720
  2. VERSED [Concomitant]
  3. OXYCODONE          (OXYCODONE) [Concomitant]
  4. FENTANYL CITRATE [Concomitant]

REACTIONS (7)
  - AGGRESSION [None]
  - AGITATION [None]
  - CONFUSIONAL STATE [None]
  - DRUG INTERACTION [None]
  - DRUG WITHDRAWAL SYNDROME [None]
  - DYSKINESIA [None]
  - FEELING HOT [None]
